FAERS Safety Report 6195925-3 (Version None)
Quarter: 2009Q2

REPORT INFORMATION
  Report Type: 
  Country: None (occurrence: None)
  Receive Date: 20090520
  Receipt Date: 20090414
  Transmission Date: 20091009
  Serious: Yes (Other)
  Sender: FDA-Public Use
  Company Number: US-AVENTIS-200913120US

PATIENT
  Sex: Female
  Weight: 104.31 kg

DRUGS (25)
  1. FUROSEMIDE [Suspect]
     Route: 048
     Dates: start: 20090201
  2. FUROSEMIDE [Suspect]
     Route: 048
     Dates: end: 20090201
  3. PLAVIX [Suspect]
     Route: 048
     Dates: start: 20081001
  4. PLAVIX [Suspect]
     Indication: STENT PLACEMENT
     Route: 048
     Dates: start: 20081001
  5. CRESTOR [Suspect]
     Dates: start: 20080901, end: 20090220
  6. ADVAIR HFA [Concomitant]
     Dosage: DOSE: 250/50
  7. ALBUTEROL INHALER MDI [Concomitant]
     Dosage: DOSE: UNK
  8. AMLODIPINE [Concomitant]
     Dates: start: 20070101
  9. ASPIRIN [Concomitant]
     Dates: start: 20081001
  10. ATENOLOL [Concomitant]
     Dates: start: 20040101
  11. BUPROPION HCL [Concomitant]
     Dates: start: 20050101
  12. CLONAZEPAM [Concomitant]
     Dates: start: 19990101
  13. DOCUSATE SODIUM [Concomitant]
     Dates: start: 19990101
  14. FENTANYL [Concomitant]
     Dates: start: 20060101
  15. GABAPENTIN [Concomitant]
     Dates: start: 19990101
  16. LEVOTHYROXINE SODIUM [Concomitant]
     Dosage: DOSE: 175 MCG
     Dates: start: 19990101
  17. LISINOPRIL [Concomitant]
     Dates: start: 20050101
  18. NASACORT [Concomitant]
     Dosage: DOSE: 1 SPRY PER NOSTRIL
     Dates: start: 20060101
  19. ZYRTEC [Concomitant]
  20. NEXIUM [Concomitant]
     Dates: start: 20070101
  21. TRILEPTAL [Concomitant]
  22. AMBIEN [Concomitant]
     Dates: start: 20080101
  23. SPIRIVA [Concomitant]
  24. MIRALAX [Concomitant]
     Dosage: DOSE: ONCE OR TWICE
     Dates: start: 20081001
  25. NITROGLYCERIN [Concomitant]
     Route: 060
     Dates: start: 20081001

REACTIONS (26)
  - ANGINA PECTORIS [None]
  - ARTHRALGIA [None]
  - ASTHENIA [None]
  - BACK PAIN [None]
  - CHROMATURIA [None]
  - CONDITION AGGRAVATED [None]
  - CONFUSIONAL STATE [None]
  - CONSTIPATION [None]
  - CONTUSION [None]
  - DEPRESSION [None]
  - DIZZINESS [None]
  - DRUG INEFFECTIVE [None]
  - DYSPNOEA [None]
  - FATIGUE [None]
  - HEADACHE [None]
  - HEPATIC ENZYME INCREASED [None]
  - HYPERSENSITIVITY [None]
  - INFLUENZA LIKE ILLNESS [None]
  - NAUSEA [None]
  - OEDEMA PERIPHERAL [None]
  - PITTING OEDEMA [None]
  - POLLAKIURIA [None]
  - PULMONARY CONGESTION [None]
  - VOMITING [None]
  - WEIGHT INCREASED [None]
  - WHEEZING [None]
